FAERS Safety Report 13240642 (Version 1)
Quarter: 2017Q1

REPORT INFORMATION
  Report Type: Spontaneous
  Country: US (occurrence: US)
  Receive Date: 20170216
  Receipt Date: 20170216
  Transmission Date: 20170428
  Serious: No
  Sender: FDA-Public Use
  Company Number: US-RELYPSA-RLY2016004113

PATIENT
  Age: 71 Year
  Sex: Male

DRUGS (5)
  1. VELTASSA [Suspect]
     Active Substance: PATIROMER
     Dosage: 8.4 G, QOD
     Route: 048
     Dates: start: 20161126
  2. CLONIDINE. [Concomitant]
     Active Substance: CLONIDINE
  3. VELTASSA [Suspect]
     Active Substance: PATIROMER
     Indication: HYPERKALAEMIA
     Dosage: 8.4 G, QD
     Route: 048
     Dates: start: 201611, end: 201611
  4. HYDRALAZINE [Concomitant]
     Active Substance: HYDRALAZINE HYDROCHLORIDE
  5. LASIX [Concomitant]
     Active Substance: FUROSEMIDE

REACTIONS (6)
  - Feeling abnormal [Unknown]
  - Medication residue present [Unknown]
  - Inappropriate schedule of drug administration [Not Recovered/Not Resolved]
  - Cough [Unknown]
  - Dyspnoea [Recovered/Resolved]
  - Product difficult to swallow [Unknown]

NARRATIVE: CASE EVENT DATE: 201611
